FAERS Safety Report 15943203 (Version 2)
Quarter: 2019Q2

REPORT INFORMATION
  Report Type: Spontaneous
  Country: US (occurrence: US)
  Receive Date: 20190210
  Receipt Date: 20190411
  Transmission Date: 20190711
  Serious: Yes (Other)
  Sender: FDA-Public Use
  Company Number: US-ASTRAZENECA-2018SF26881

PATIENT
  Age: 25105 Day
  Sex: Male

DRUGS (19)
  1. DEPAKOTE [Concomitant]
     Active Substance: DIVALPROEX SODIUM
     Dosage: TAKE 2 TABLET BY MOUTH ONCE A DAY
  2. ROZEREM [Concomitant]
     Active Substance: RAMELTEON
     Dates: start: 20070823
  3. PLAVIX [Concomitant]
     Active Substance: CLOPIDOGREL BISULFATE
     Dates: start: 20100922
  4. CEPHALEXIN. [Concomitant]
     Active Substance: CEPHALEXIN
     Dates: start: 20110120
  5. NEXIUM [Suspect]
     Active Substance: ESOMEPRAZOLE MAGNESIUM
     Route: 048
     Dates: start: 20110117
  6. NEXIUM [Suspect]
     Active Substance: ESOMEPRAZOLE MAGNESIUM
     Dosage: GENERIC
     Route: 065
     Dates: start: 2015, end: 2016
  7. METOPROLOL TARTRATE. [Concomitant]
     Active Substance: METOPROLOL TARTRATE
     Dosage: TAKE 1 TABLET BY MOUTH TWICE A DAY WITH MEALS
  8. NEXIUM [Suspect]
     Active Substance: ESOMEPRAZOLE MAGNESIUM
     Route: 065
     Dates: start: 2011, end: 2014
  9. METOPROLOL TARTRATE. [Concomitant]
     Active Substance: METOPROLOL TARTRATE
     Dates: start: 20101011
  10. NEURONTIN [Concomitant]
     Active Substance: GABAPENTIN
     Dosage: TAKE THREE TABLETS A DAY AND THREE TABLETS AT NIGHT
  11. RANEXA [Concomitant]
     Active Substance: RANOLAZINE
     Dosage: TAKE 1 TABLET BY MOUTH TWICE A DAY
  12. ASPIRIN. [Concomitant]
     Active Substance: ASPIRIN
     Dosage: TAKE 1 TABLET BY MOUTH ONCE A DAY
  13. LIPITOR [Concomitant]
     Active Substance: ATORVASTATIN CALCIUM
     Dosage: TAKE 1 TABLET BY MOUTH ONCE A DAY
     Dates: start: 20101011
  14. TRAZODONE [Concomitant]
     Active Substance: TRAZODONE HYDROCHLORIDE
     Dosage: TAKE 1 TABLET BY MOUTH AT BEDTIME
  15. NEXIUM [Suspect]
     Active Substance: ESOMEPRAZOLE MAGNESIUM
     Route: 048
     Dates: start: 2001, end: 2016
  16. NASONEX [Concomitant]
     Active Substance: MOMETASONE FUROATE
     Dates: start: 20070717
  17. EFFEXOR [Concomitant]
     Active Substance: VENLAFAXINE HYDROCHLORIDE
     Dosage: TAKE 3 CAPSULE BY MOUTH ONCE A DAY WITH MEALS
  18. NEURONTIN [Concomitant]
     Active Substance: GABAPENTIN
     Dosage: GABAPENTIN
     Dates: start: 20101011
  19. DIVALPROEX SODIUM. [Concomitant]
     Active Substance: DIVALPROEX SODIUM
     Dates: start: 20100408

REACTIONS (1)
  - Chronic kidney disease [Not Recovered/Not Resolved]

NARRATIVE: CASE EVENT DATE: 20150716
